FAERS Safety Report 22189580 (Version 1)
Quarter: 2023Q2

REPORT INFORMATION
  Report Type: Report from Study
  Country: BR (occurrence: BR)
  Receive Date: 20230410
  Receipt Date: 20230410
  Transmission Date: 20230722
  Serious: Yes (Other)
  Sender: FDA-Public Use
  Company Number: BR-CELLTRION INC.-2023BR002708

PATIENT

DRUGS (7)
  1. INFLIXIMAB [Suspect]
     Active Substance: INFLIXIMAB
     Indication: Crohn^s disease
     Dosage: 4 AMPOULES EVERY 2 MONTHS (STARTED 4 MONTHS AGO)
     Route: 042
  2. ZETRON XL [Concomitant]
     Indication: Depression
     Dosage: 150 MG, 1 PILL PER DAY (3 MONTHS AGO)
     Route: 048
  3. TIBOLONE [Concomitant]
     Active Substance: TIBOLONE
     Dosage: 2.5 MG, 1 PILL PER DAY
     Route: 048
     Dates: start: 2013
  4. DEPAKOTE ER [Concomitant]
     Active Substance: DIVALPROEX SODIUM
     Indication: Depression
     Dosage: 500 MG, 1 PILL PER DAY
     Route: 048
     Dates: start: 2013
  5. ZOLPIDEM [Concomitant]
     Active Substance: ZOLPIDEM TARTRATE
     Indication: Insomnia
     Dosage: 0.5 MG, 2 PILLS PER DAY (6 YEARS AGO)
     Route: 048
  6. DONAREM [Concomitant]
     Indication: Insomnia
     Dosage: 100 MG, 1/4 PILL PER DAY (8 YEARS AGO)
     Route: 048
  7. PRAMIPEXOLE [Concomitant]
     Active Substance: PRAMIPEXOLE
     Indication: Parkinsonism
     Dosage: 0.75 MG, 1 PILL PER DAY (19 YEARS AGO)
     Route: 048

REACTIONS (9)
  - Haematochezia [Unknown]
  - Sleep disorder [Unknown]
  - Pruritus [Unknown]
  - Dyspnoea [Unknown]
  - Malaise [Unknown]
  - Abdominal pain [Unknown]
  - Swelling [Unknown]
  - Drug ineffective [Unknown]
  - Off label use [Unknown]
